FAERS Safety Report 9684051 (Version 2)
Quarter: 2013Q4

REPORT INFORMATION
  Report Type: Spontaneous
  Country: AT (occurrence: AT)
  Receive Date: 20131112
  Receipt Date: 20131122
  Transmission Date: 20140711
  Serious: Yes (Other)
  Sender: FDA-Public Use
  Company Number: AT-AMGEN-AUTSP2013078410

PATIENT
  Age: 40 Year
  Sex: Male
  Weight: 59 kg

DRUGS (7)
  1. XGEVA [Suspect]
     Indication: PROPHYLAXIS
     Dosage: 120 MG, UNK
     Route: 058
     Dates: start: 20130709
  2. AMLODIPINE [Concomitant]
     Indication: HYPERTENSION
     Dosage: 5 MG, QD
     Route: 048
     Dates: start: 20121220
  3. CHOLECALCIFEROL [Concomitant]
     Indication: VITAMIN D DEFICIENCY
     Dosage: 5600 UNIT, QWK
     Route: 048
     Dates: start: 20130531
  4. BISOPROLOL FUMARATE [Concomitant]
     Indication: HYPERTENSION
     Dosage: 2.5 MG, QD
     Route: 048
     Dates: start: 20120718
  5. PANTOLOC                           /01263204/ [Concomitant]
     Indication: URAEMIC GASTROPATHY
     Dosage: 40 MG, QD
     Route: 048
     Dates: start: 20121113
  6. EPORATIO [Concomitant]
     Indication: NEPHROGENIC ANAEMIA
     Dosage: 4000 UNIT, Q3WK
     Route: 042
     Dates: start: 20120905
  7. VITAMIN D                          /00107901/ [Concomitant]

REACTIONS (4)
  - Hypocalcaemia [Recovered/Resolved]
  - Hypoaesthesia [Unknown]
  - Paraesthesia [Unknown]
  - Blood creatinine abnormal [Unknown]
